FAERS Safety Report 7355900-X (Version None)
Quarter: 2011Q1

REPORT INFORMATION
  Report Type: 
  Country: None (occurrence: None)
  Receive Date: 20110316
  Receipt Date: 20101026
  Transmission Date: 20110831
  Serious: No
  Sender: FDA-Public Use
  Company Number: US-BAYER-201023119BCC

PATIENT
  Sex: Female

DRUGS (2)
  1. PHILLIPS MOM LIQUID ORIGINAL [Suspect]
     Indication: CONSTIPATION
  2. ASPIRIN [Concomitant]

REACTIONS (1)
  - MUSCLE SPASMS [None]
